FAERS Safety Report 4744426-5 (Version None)
Quarter: 2005Q3

REPORT INFORMATION
  Report Type: 
  Country: None (occurrence: None)
  Receive Date: 20050811
  Receipt Date: 20050811
  Transmission Date: 20060218
  Serious: Yes (Hospitalization)
  Sender: FDA-Public Use
  Company Number: None

PATIENT
  Age: 41 Year
  Sex: Female
  Weight: 83.4619 kg

DRUGS (11)
  1. VIREAD [Suspect]
     Indication: HIV INFECTION
     Dosage: 100 MG 1 TAB PO QD
     Route: 048
     Dates: start: 20050705
  2. ATAZANAVIR [Suspect]
     Indication: HIV INFECTION
     Dosage: 150 MG 2 CAPS PO QD
     Route: 048
     Dates: start: 20050705
  3. IBUPROFEN [Concomitant]
  4. RANITIDINE HCL [Concomitant]
  5. GABAPENTIN [Concomitant]
  6. NORVIR [Concomitant]
  7. LAMIVUDINE [Concomitant]
  8. MORPHINE SULFATE [Concomitant]
  9. PROMETHAZINE [Concomitant]
  10. IBUPROFEN [Concomitant]
  11. HYDROCODONE BITARTRATE + ACETAMINOPHEN [Concomitant]

REACTIONS (3)
  - NEPHROLITHIASIS [None]
  - PAIN [None]
  - VOMITING [None]
